FAERS Safety Report 10337266 (Version 1)
Quarter: 2014Q3

REPORT INFORMATION
  Report Type: Spontaneous
  Country: ZA (occurrence: ZA)
  Receive Date: 20140723
  Receipt Date: 20140723
  Transmission Date: 20150326
  Serious: Yes (Hospitalization)
  Sender: FDA-Public Use
  Company Number: ZA-ABBVIE-14P-143-1263549-00

PATIENT
  Sex: Female

DRUGS (1)
  1. EPILIZINE [Suspect]
     Active Substance: VALPROATE SODIUM
     Indication: PRODUCT USED FOR UNKNOWN INDICATION
     Route: 042

REACTIONS (2)
  - Hospitalisation [Unknown]
  - Drug level decreased [Unknown]
